FAERS Safety Report 22931587 (Version 2)
Quarter: 2023Q4

REPORT INFORMATION
  Report Type: Spontaneous
  Country: CA (occurrence: CA)
  Receive Date: 20230911
  Receipt Date: 20231124
  Transmission Date: 20240109
  Serious: Yes (Other)
  Sender: FDA-Public Use
  Company Number: CA-AstraZeneca-2023A202269

PATIENT
  Sex: Female
  Weight: 56 kg

DRUGS (1)
  1. TRASTUZUMAB DERUXTECAN [Suspect]
     Active Substance: TRASTUZUMAB DERUXTECAN
     Indication: Breast cancer female
     Dosage: 313 MG, ONCE EVERY 3 WK
     Route: 042

REACTIONS (4)
  - Pleural effusion [Recovering/Resolving]
  - Alopecia [Recovering/Resolving]
  - Pneumonia [Recovering/Resolving]
  - Off label use [Recovering/Resolving]
